FAERS Safety Report 19657051 (Version 1)
Quarter: 2021Q3

REPORT INFORMATION
  Report Type: Spontaneous
  Country: AU (occurrence: AU)
  Receive Date: 20210804
  Receipt Date: 20210804
  Transmission Date: 20211014
  Serious: Yes (Hospitalization, Other)
  Sender: FDA-Public Use
  Company Number: AU-MYLANLABS-2021M1048588

PATIENT
  Age: 46 Year
  Sex: Female

DRUGS (1)
  1. FENTANYL. [Suspect]
     Active Substance: FENTANYL
     Indication: BACK PAIN
     Dosage: 150 MICROGRAM, QH (FENTANYL 150UG/HR APPLIED EVERY THREE DAYS)
     Route: 062

REACTIONS (9)
  - Drug tolerance increased [Recovering/Resolving]
  - Loss of personal independence in daily activities [Recovering/Resolving]
  - Gait disturbance [Recovering/Resolving]
  - Toxicity to various agents [Recovering/Resolving]
  - Treatment failure [Recovering/Resolving]
  - Constipation [Unknown]
  - Withdrawal syndrome [Recovering/Resolving]
  - Dysstasia [Recovering/Resolving]
  - Somnolence [Unknown]
